FAERS Safety Report 13356394 (Version 1)
Quarter: 2017Q1

REPORT INFORMATION
  Report Type: Spontaneous
  Country: PL (occurrence: PL)
  Receive Date: 20170321
  Receipt Date: 20170321
  Transmission Date: 20170429
  Serious: Yes (Life-Threatening)
  Sender: FDA-Public Use
  Company Number: PHHY2017PL036691

PATIENT
  Age: 56 Year
  Sex: Female

DRUGS (1)
  1. PACLITAXEL. [Suspect]
     Active Substance: PACLITAXEL
     Indication: OVARIAN CANCER
     Dosage: 313 MG, UNK
     Route: 042
     Dates: start: 20170209, end: 20170209

REACTIONS (4)
  - Anaphylactic shock [Unknown]
  - Hyperhidrosis [Unknown]
  - Bradycardia [Unknown]
  - Decreased eye contact [Unknown]

NARRATIVE: CASE EVENT DATE: 20170209
